FAERS Safety Report 13323146 (Version 1)
Quarter: 2017Q1

REPORT INFORMATION
  Report Type: Spontaneous
  Country: IE (occurrence: IE)
  Receive Date: 20170309
  Receipt Date: 20170309
  Transmission Date: 20170428
  Serious: Yes (Life-Threatening, Hospitalization)
  Sender: FDA-Public Use
  Company Number: IE-TEVA-745004ACC

PATIENT
  Age: 39 Year
  Sex: Female

DRUGS (7)
  1. PUREGON [Suspect]
     Active Substance: FOLLITROPIN
     Indication: IN VITRO FERTILISATION
     Dosage: 300 IU (INTERNATIONAL UNIT) DAILY;
     Route: 058
     Dates: start: 20160512
  2. PREGNYL [Suspect]
     Active Substance: CHORIOGONADOTROPIN ALFA
     Indication: IN VITRO FERTILISATION
     Dosage: 10000 IU (INTERNATIONAL UNIT) DAILY;
     Dates: start: 20160523, end: 20160523
  3. PETHIDINE (G) [Suspect]
     Active Substance: MEPERIDINE
     Indication: SEDATIVE THERAPY
     Route: 042
     Dates: start: 20160525
  4. PUREGON [Suspect]
     Active Substance: FOLLITROPIN
     Dosage: 375 IU (INTERNATIONAL UNIT) DAILY;
     Dates: start: 20160517
  5. SYNAREL [Suspect]
     Active Substance: NAFARELIN ACETATE
     Indication: IN VITRO FERTILISATION
     Dosage: 4 DOSAGE FORMS DAILY;
     Dates: start: 20160427, end: 20160523
  6. FOLIC ACID. [Concomitant]
     Active Substance: FOLIC ACID
  7. DIAZEMULS [Suspect]
     Active Substance: DIAZEPAM
     Indication: SEDATIVE THERAPY
     Route: 042
     Dates: start: 20160525

REACTIONS (2)
  - Vertebral artery dissection [Recovering/Resolving]
  - Basilar artery thrombosis [Recovering/Resolving]

NARRATIVE: CASE EVENT DATE: 20160529
